FAERS Safety Report 9036998 (Version 1)
Quarter: 2013Q1

REPORT INFORMATION
  Report Type: Spontaneous
  Country: US (occurrence: None)
  Receive Date: 20130118
  Receipt Date: 20130118
  Transmission Date: 20140127
  Serious: Yes (Death)
  Sender: FDA-Public Use
  Company Number: None

PATIENT
  Age: 6 Month
  Sex: Male
  Weight: 7.5 kg

DRUGS (2)
  1. ARGATROBAN [Suspect]
     Indication: AORTIC THROMBOSIS
     Dosage: 0.75-0.44MCG/KG/MIN CONTINUOUS IV DRIP
     Route: 041
     Dates: start: 20121218, end: 20121219
  2. ALTEPLASE [Suspect]
     Indication: AORTIC THROMBOSIS
     Dosage: 1.5 + 2.3MG; 0.05-0.06MG/KG/HR
     Dates: start: 20121218, end: 20121219

REACTIONS (4)
  - Haemorrhage intracranial [None]
  - Subdural haemorrhage [None]
  - Subarachnoid haemorrhage [None]
  - Brain herniation [None]
